FAERS Safety Report 4555241-X (Version None)
Quarter: 2004Q4

REPORT INFORMATION
  Report Type: 
  Country: None (occurrence: None)
  Receive Date: 20041217
  Receipt Date: 20040830
  Transmission Date: 20050328
  Serious: No
  Sender: FDA-Public Use
  Company Number: 2004-BP-07478BP

PATIENT
  Age: 73 Year
  Sex: Female

DRUGS (14)
  1. SPIRIVA [Suspect]
     Indication: CHRONIC OBSTRUCTIVE AIRWAYS DISEASE
     Dosage: 18 MCG (18 MCG), IH
     Route: 055
     Dates: start: 20040601, end: 20040816
  2. SPIRIVA [Suspect]
  3. ALBUTEROL [Concomitant]
  4. SINGULAIR (MONTELUKAST) [Concomitant]
  5. OGEN [Concomitant]
  6. ESTROPIPATE [Concomitant]
  7. PREDNISONE [Concomitant]
  8. FUROSEMIDE (FUROSEMIDE) [Concomitant]
  9. LEVOXYL [Concomitant]
  10. VITAMIN E [Concomitant]
  11. CALCIUM (CALCIUM) [Concomitant]
  12. POTASSIUM (POTASSIUM) [Concomitant]
  13. UNIPHYL [Concomitant]
  14. ADVAIR (SERETIDE MITE) [Concomitant]

REACTIONS (13)
  - DIPLOPIA [None]
  - DRY EYE [None]
  - DRY MOUTH [None]
  - DRY THROAT [None]
  - DYSPHAGIA [None]
  - EYE IRRITATION [None]
  - EYE REDNESS [None]
  - GLOSSITIS [None]
  - MOUTH ULCERATION [None]
  - ORAL PAIN [None]
  - PHARYNGOLARYNGEAL PAIN [None]
  - THROAT IRRITATION [None]
  - WHEEZING [None]
